FAERS Safety Report 10458633 (Version 1)
Quarter: 2014Q3

REPORT INFORMATION
  Report Type: Spontaneous
  Country: US (occurrence: US)
  Receive Date: 20140917
  Receipt Date: 20140917
  Transmission Date: 20150326
  Serious: Yes (Other)
  Sender: FDA-Public Use
  Company Number: US-BAYER-2014-132329

PATIENT
  Age: 78 Year
  Sex: Male
  Weight: 68.27 kg

DRUGS (1)
  1. MILK OF MAGNESIA [Suspect]
     Active Substance: MAGNESIUM HYDROXIDE
     Indication: CONSTIPATION
     Dosage: 2 TABLESPOONS, PRN
     Route: 048
     Dates: start: 2013

REACTIONS (5)
  - Wrong technique in drug usage process [None]
  - Drug effect delayed [Recovered/Resolved]
  - Diarrhoea [Recovered/Resolved]
  - Haematochezia [Recovered/Resolved]
  - Defaecation urgency [Recovered/Resolved]

NARRATIVE: CASE EVENT DATE: 20140901
